FAERS Safety Report 5013794-1 (Version None)
Quarter: 2006Q2

REPORT INFORMATION
  Report Type: 
  Country: None (occurrence: None)
  Receive Date: 20060526
  Receipt Date: 20060526
  Transmission Date: 20061013
  Serious: No
  Sender: FDA-Public Use
  Company Number: None

PATIENT
  Age: 82 Year
  Sex: Female

DRUGS (1)
  1. MICRONASE [Suspect]
     Dosage: TABLET

REACTIONS (8)
  - BLOOD GLUCOSE DECREASED [None]
  - CARDIAC FAILURE [None]
  - DEATH [None]
  - DRUG DISPENSING ERROR [None]
  - MEDICATION ERROR [None]
  - PNEUMONIA ASPIRATION [None]
  - RENAL FAILURE [None]
  - WRONG DRUG ADMINISTERED [None]
